FAERS Safety Report 15550693 (Version 1)
Quarter: 2018Q4

REPORT INFORMATION
  Report Type: Spontaneous
  Country: US (occurrence: US)
  Receive Date: 20181019
  Receipt Date: 20181019
  Transmission Date: 20190205
  Serious: Yes (Hospitalization)
  Sender: FDA-Public Use
  Company Number: None

PATIENT
  Age: 59 Year
  Sex: Male

DRUGS (18)
  1. HYDROXYZ [Concomitant]
     Active Substance: HYDROXYZINE HYDROCHLORIDE
  2. TOBRAMYCIN 300MG/5ML [Suspect]
     Active Substance: TOBRAMYCIN
     Indication: CYSTIC FIBROSIS
     Dosage: 5ML BID 28DS ON 28 OFF INHALE VIA NEBULIZER
     Route: 055
     Dates: start: 201605
  3. SYMBICORT [Concomitant]
     Active Substance: BUDESONIDE\FORMOTEROL FUMARATE DIHYDRATE
  4. ACYCLOVIR. [Concomitant]
     Active Substance: ACYCLOVIR
  5. FLUTICASONE. [Concomitant]
     Active Substance: FLUTICASONE
  6. AMLODIPINE [Concomitant]
     Active Substance: AMLODIPINE BESYLATE
  7. TAMSULOSIN [Concomitant]
     Active Substance: TAMSULOSIN
  8. POLYETH GLYC [Concomitant]
     Active Substance: POLYETHYLENE GLYCOLS
  9. TEMAZEPAM. [Concomitant]
     Active Substance: TEMAZEPAM
  10. ZENPEP [Concomitant]
     Active Substance: PANCRELIPASE AMYLASE\PANCRELIPASE LIPASE\PANCRELIPASE PROTEASE
  11. SODIUM CHLOR [Concomitant]
     Active Substance: SODIUM CHLORIDE
  12. BUPROPN HCL [Concomitant]
     Active Substance: BUPROPION HYDROCHLORIDE
  13. RANITIDINE. [Concomitant]
     Active Substance: RANITIDINE
  14. METHOCARBAM [Concomitant]
     Active Substance: METHOCARBAMOL
  15. VENTOLIN [Concomitant]
     Active Substance: ALBUTEROL SULFATE
  16. CAYSTON [Concomitant]
     Active Substance: AZTREONAM
  17. PULMOZYME [Suspect]
     Active Substance: DORNASE ALFA
     Indication: CYSTIC FIBROSIS
     Dates: start: 201701
  18. VALSART/ HCTZ [Concomitant]

REACTIONS (1)
  - Chest pain [None]

NARRATIVE: CASE EVENT DATE: 20181014
